FAERS Safety Report 16884026 (Version 1)
Quarter: 2019Q4

REPORT INFORMATION
  Report Type: Spontaneous
  Country: CH (occurrence: CH)
  Receive Date: 20191004
  Receipt Date: 20191004
  Transmission Date: 20200122
  Serious: Yes (Other)
  Sender: FDA-Public Use
  Company Number: CH-ROCHE-2424864

PATIENT
  Sex: Female

DRUGS (1)
  1. LUCENTIS [Suspect]
     Active Substance: RANIBIZUMAB
     Indication: AGE-RELATED MACULAR DEGENERATION
     Dosage: LAST DOSE ON 21/MAY/2019.
     Route: 031
     Dates: start: 201807

REACTIONS (2)
  - Neovascular age-related macular degeneration [Unknown]
  - Ischaemic stroke [Unknown]

NARRATIVE: CASE EVENT DATE: 201906
